FAERS Safety Report 7245542-9 (Version None)
Quarter: 2011Q1

REPORT INFORMATION
  Report Type: 
  Country: None (occurrence: None)
  Receive Date: 20110126
  Receipt Date: 20110117
  Transmission Date: 20110831
  Serious: Yes (Other)
  Sender: FDA-Public Use
  Company Number: FR-ROCHE-754449

PATIENT

DRUGS (1)
  1. PEGINTERFERON ALFA-2A [Suspect]
     Route: 065

REACTIONS (1)
  - RENAL FAILURE ACUTE [None]
